FAERS Safety Report 15670791 (Version 3)
Quarter: 2018Q4

REPORT INFORMATION
  Report Type: Spontaneous
  Country: ES (occurrence: ES)
  Receive Date: 20181129
  Receipt Date: 20181228
  Transmission Date: 20190205
  Serious: Yes (Hospitalization, Other)
  Sender: FDA-Public Use
  Company Number: ES-ALEXION PHARMACEUTICALS INC-A201815446

PATIENT
  Age: 47 Year
  Sex: Female

DRUGS (2)
  1. SOLIRIS [Suspect]
     Active Substance: ECULIZUMAB
     Indication: PAROXYSMAL NOCTURNAL HAEMOGLOBINURIA
     Dosage: 900 MG/KG, Q2W
     Route: 042
     Dates: start: 2013
  2. CYCLOSPORINE. [Suspect]
     Active Substance: CYCLOSPORINE
     Indication: PAROXYSMAL NOCTURNAL HAEMOGLOBINURIA
     Dosage: 3 MG/KG, QD
     Route: 042
     Dates: start: 2017

REACTIONS (10)
  - Pseudomonas infection [Recovered/Resolved]
  - Neutrophil count decreased [Unknown]
  - Pyrexia [Recovered/Resolved]
  - Hypochromic anaemia [Unknown]
  - White blood cell count decreased [Unknown]
  - Ecthyma [Recovered/Resolved]
  - Lymphocyte count decreased [Unknown]
  - Normocytic anaemia [Unknown]
  - Haemoglobin decreased [Unknown]
  - Platelet count decreased [Unknown]
